FAERS Safety Report 21604443 (Version 1)
Quarter: 2022Q4

REPORT INFORMATION
  Report Type: Spontaneous
  Country: IE (occurrence: IE)
  Receive Date: 20221116
  Receipt Date: 20221116
  Transmission Date: 20230112
  Serious: Yes (Other)
  Sender: FDA-Public Use
  Company Number: IE-FreseniusKabi-FK202216208

PATIENT
  Age: 72 Year
  Sex: Male

DRUGS (17)
  1. ETOPOSIDE [Suspect]
     Active Substance: ETOPOSIDE
     Indication: Diffuse large B-cell lymphoma
     Dosage: R-EPOCH
  2. RITUXIMAB [Suspect]
     Active Substance: RITUXIMAB
     Indication: Diffuse large B-cell lymphoma
     Dosage: R-CHOP
  3. RITUXIMAB [Suspect]
     Active Substance: RITUXIMAB
     Dosage: R-MINI-CHOP
  4. RITUXIMAB [Suspect]
     Active Substance: RITUXIMAB
     Dosage: R-EPOCH
  5. PREDNISOLONE [Suspect]
     Active Substance: PREDNISOLONE
     Indication: Diffuse large B-cell lymphoma
     Dosage: R-EPOCH
  6. PREDNISOLONE [Suspect]
     Active Substance: PREDNISOLONE
     Dosage: R-CHOP
  7. PREDNISOLONE [Suspect]
     Active Substance: PREDNISOLONE
     Dosage: R-MINI-CHOP
  8. VINCRISTINE [Suspect]
     Active Substance: VINCRISTINE
     Indication: Diffuse large B-cell lymphoma
     Dosage: R-EPOCH
  9. VINCRISTINE [Suspect]
     Active Substance: VINCRISTINE
     Dosage: R-CHOP
  10. VINCRISTINE [Suspect]
     Active Substance: VINCRISTINE
     Dosage: R-MINI-CHOP
  11. CYCLOPHOSPHAMIDE [Suspect]
     Active Substance: CYCLOPHOSPHAMIDE
     Indication: Diffuse large B-cell lymphoma
     Dosage: R-EPOCH
  12. CYCLOPHOSPHAMIDE [Suspect]
     Active Substance: CYCLOPHOSPHAMIDE
     Dosage: R-CHOP
  13. CYCLOPHOSPHAMIDE [Suspect]
     Active Substance: CYCLOPHOSPHAMIDE
     Dosage: R-MINI-CHOP
  14. DOXORUBICIN HYDROCHLORIDE [Suspect]
     Active Substance: DOXORUBICIN HYDROCHLORIDE
     Indication: Diffuse large B-cell lymphoma
     Dosage: R-EPOCH
  15. DOXORUBICIN HYDROCHLORIDE [Suspect]
     Active Substance: DOXORUBICIN HYDROCHLORIDE
     Dosage: R-CHOP
  16. DOXORUBICIN HYDROCHLORIDE [Suspect]
     Active Substance: DOXORUBICIN HYDROCHLORIDE
     Dosage: R-MINI-CHOP
  17. METHOTREXATE [Concomitant]
     Active Substance: METHOTREXATE
     Indication: Prophylaxis
     Route: 037

REACTIONS (1)
  - Neutropenic sepsis [Unknown]
